FAERS Safety Report 7922425 (Version 3)
Quarter: 2014Q3

REPORT INFORMATION
  Report Type: Spontaneous
  Country: US (occurrence: US)
  Receive Date: 20110429
  Receipt Date: 20140812
  Transmission Date: 20150326
  Serious: Yes (Other)
  Sender: FDA-Public Use
  Company Number: US-ASTRAZENECA-2010SE49041

PATIENT
  Age: 51 Year
  Sex: Female

DRUGS (1)
  1. NEXIUM [Suspect]
     Active Substance: ESOMEPRAZOLE MAGNESIUM
     Route: 048

REACTIONS (9)
  - Dysphagia [Unknown]
  - Pain [Unknown]
  - Insomnia [Unknown]
  - Throat irritation [Unknown]
  - Malaise [Unknown]
  - Condition aggravated [Unknown]
  - Vomiting [Unknown]
  - Drug dose omission [Unknown]
  - Abdominal discomfort [Unknown]
